FAERS Safety Report 19170652 (Version 1)
Quarter: 2021Q2

REPORT INFORMATION
  Report Type: Spontaneous
  Country: US (occurrence: US)
  Receive Date: 20210422
  Receipt Date: 20210422
  Transmission Date: 20210717
  Serious: Yes (Hospitalization)
  Sender: FDA-Public Use
  Company Number: US-CELGENEUS-USA-20210404638

PATIENT
  Age: 56 Year
  Sex: Male

DRUGS (6)
  1. REVLIMID [Suspect]
     Active Substance: LENALIDOMIDE
     Indication: PLASMA CELL MYELOMA
     Dosage: 20 MILLIGRAM
     Route: 048
     Dates: start: 20210127
  2. REVLIMID [Suspect]
     Active Substance: LENALIDOMIDE
     Indication: PLASMACYTOMA
  3. XARELTO [Concomitant]
     Active Substance: RIVAROXABAN
     Indication: GASTROOESOPHAGEAL REFLUX DISEASE
     Dosage: 360 MILLIGRAM
     Route: 048
     Dates: start: 20210401
  4. DEXAMETHASONE. [Concomitant]
     Active Substance: DEXAMETHASONE
     Indication: PLASMA CELL MYELOMA
     Dosage: 4 MILLIGRAM
     Route: 048
     Dates: start: 20210127
  5. PANTOPRAZOLE [Concomitant]
     Active Substance: PANTOPRAZOLE
     Indication: HYPOVITAMINOSIS
     Dosage: 40 MILLIGRAM
     Route: 048
     Dates: start: 20210211
  6. NYSTATIN. [Concomitant]
     Active Substance: NYSTATIN
     Indication: PLASMA CELL MYELOMA
     Dosage: 100000 U/ML
     Route: 048
     Dates: start: 20210211

REACTIONS (1)
  - Thrombosis [Recovered/Resolved]

NARRATIVE: CASE EVENT DATE: 20210401
